FAERS Safety Report 14454264 (Version 1)
Quarter: 2018Q1

REPORT INFORMATION
  Report Type: Spontaneous
  Country: US (occurrence: US)
  Receive Date: 20180129
  Receipt Date: 20180129
  Transmission Date: 20180509
  Serious: No
  Sender: FDA-Public Use
  Company Number: US-PERRIGO-17US001881

PATIENT
  Sex: Female

DRUGS (1)
  1. TRETINOIN. [Suspect]
     Active Substance: TRETINOIN
     Indication: ROUTINE HEALTH MAINTENANCE
     Dosage: 1 APPLICATION, NIGHTLY
     Route: 061

REACTIONS (2)
  - Off label use [Not Recovered/Not Resolved]
  - Blister [Not Recovered/Not Resolved]
